FAERS Safety Report 25522462 (Version 1)
Quarter: 2025Q3

REPORT INFORMATION
  Report Type: Spontaneous
  Country: EU (occurrence: EU)
  Receive Date: 20250707
  Receipt Date: 20250707
  Transmission Date: 20251021
  Serious: Yes (Other)
  Sender: AMGEN
  Company Number: EU-AMGEN-FRASP2025131607

PATIENT
  Sex: Female

DRUGS (1)
  1. NPLATE [Suspect]
     Active Substance: ROMIPLOSTIM
     Indication: Immune thrombocytopenia
     Dosage: UNK UNK, QWK (STRENGTH: 250 MICROGRAM)
     Route: 065

REACTIONS (11)
  - Diplegia [Unknown]
  - Pain [Unknown]
  - Adverse drug reaction [Unknown]
  - Dyspepsia [Unknown]
  - Abdominal pain upper [Unknown]
  - Suffocation feeling [Unknown]
  - Arthralgia [Unknown]
  - Flatulence [Unknown]
  - Hypoaesthesia [Unknown]
  - Paraesthesia [Unknown]
  - Muscle contractions involuntary [Unknown]
